FAERS Safety Report 10169275 (Version 1)
Quarter: 2014Q2

REPORT INFORMATION
  Report Type: Spontaneous
  Country: GB (occurrence: GB)
  Receive Date: 20140513
  Receipt Date: 20140513
  Transmission Date: 20141212
  Serious: Yes (Other)
  Sender: FDA-Public Use
  Company Number: GB-DRREDDYS-GER/UKI/14/0040233

PATIENT
  Age: 72 Year
  Sex: Female

DRUGS (5)
  1. OMEPRAZOLE [Suspect]
     Indication: PRODUCT USED FOR UNKNOWN INDICATION
  2. CANDESARTAN [Concomitant]
     Indication: PRODUCT USED FOR UNKNOWN INDICATION
  3. DABIGATRAN [Concomitant]
     Indication: PRODUCT USED FOR UNKNOWN INDICATION
  4. EZETROL [Concomitant]
     Indication: PRODUCT USED FOR UNKNOWN INDICATION
  5. GLICLAZIDE [Concomitant]
     Indication: PRODUCT USED FOR UNKNOWN INDICATION

REACTIONS (6)
  - Tongue discolouration [Recovering/Resolving]
  - Headache [Recovering/Resolving]
  - Stomatitis [Recovering/Resolving]
  - Anosmia [Recovered/Resolved]
  - Ageusia [Recovered/Resolved]
  - Tongue exfoliation [Recovering/Resolving]
